FAERS Safety Report 6989738-X (Version None)
Quarter: 2010Q3

REPORT INFORMATION
  Report Type: 
  Country: None (occurrence: None)
  Receive Date: 20100916
  Receipt Date: 20100218
  Transmission Date: 20110219
  Serious: Yes (Hospitalization)
  Sender: FDA-Public Use
  Company Number: ES-PFIZER INC-2010021729

PATIENT
  Age: 65 Year
  Sex: Female

DRUGS (10)
  1. LYRICA [Suspect]
     Dosage: 25 MG, UNK
     Route: 048
     Dates: start: 20080104
  2. LENALIDOMIDE [Suspect]
     Dosage: UNK
     Route: 048
     Dates: start: 20080301
  3. TORASEMIDE [Suspect]
     Dosage: UNK
     Route: 048
     Dates: start: 20080104
  4. ATENOLOL [Suspect]
     Dosage: UNK
     Route: 048
     Dates: start: 20080104
  5. DEXAMETHASONE [Suspect]
     Dosage: UNK
     Route: 048
     Dates: start: 20070101
  6. ALLOPURINOL [Suspect]
     Dosage: UNK
     Route: 048
     Dates: start: 20080104
  7. OMEPRAZOLE [Suspect]
     Dosage: UNK
     Route: 048
     Dates: start: 20080104
  8. HYGROTON [Suspect]
     Dosage: 50 MG, 1X/DAY
     Route: 048
     Dates: start: 20080104
  9. MST [Suspect]
     Dosage: UNK
     Route: 048
     Dates: start: 20080104
  10. EPOETIN BETA [Suspect]
     Dosage: UNK
     Dates: start: 20080104

REACTIONS (1)
  - DEEP VEIN THROMBOSIS [None]
